FAERS Safety Report 6076726-3 (Version None)
Quarter: 2009Q1

REPORT INFORMATION
  Report Type: 
  Country: None (occurrence: None)
  Receive Date: 20090213
  Receipt Date: 20090209
  Transmission Date: 20090719
  Serious: Yes (Other)
  Sender: FDA-Public Use
  Company Number: US-ASTRAZENECA-2009UW00482

PATIENT
  Age: 58 Year
  Sex: Female
  Weight: 68 kg

DRUGS (5)
  1. ARIMIDEX [Suspect]
     Indication: BREAST CANCER
     Route: 048
     Dates: start: 20081201, end: 20090103
  2. LISINOPRIL [Concomitant]
  3. EFFEXOR [Concomitant]
  4. TRAZODONE HCL [Concomitant]
  5. NORCO [Concomitant]

REACTIONS (7)
  - ARTHRALGIA [None]
  - CLOSTRIDIAL INFECTION [None]
  - FEELING ABNORMAL [None]
  - HOT FLUSH [None]
  - NAUSEA [None]
  - OSTEOPOROSIS [None]
  - THINKING ABNORMAL [None]
